FAERS Safety Report 20750338 (Version 1)
Quarter: 2022Q2

REPORT INFORMATION
  Report Type: Spontaneous
  Country: US (occurrence: US)
  Receive Date: 20220426
  Receipt Date: 20220426
  Transmission Date: 20220721
  Serious: Yes (Other)
  Sender: FDA-Public Use
  Company Number: US-PFIZER INC-202200467577

PATIENT
  Age: 89 Year
  Sex: Male
  Weight: 76.203 kg

DRUGS (4)
  1. VYNDAMAX [Suspect]
     Active Substance: TAFAMIDIS
     Indication: Cardiac amyloidosis
     Dosage: 61 MG, 1X/DAY
     Route: 048
     Dates: start: 2021, end: 20220322
  2. MORPHINE [Concomitant]
     Active Substance: MORPHINE
     Indication: Dyspnoea
     Dosage: UNK
  3. HYDROCODONE [Concomitant]
     Active Substance: HYDROCODONE
     Dosage: UNK
  4. ATIVAN [Concomitant]
     Active Substance: LORAZEPAM
     Indication: Anxiety
     Dosage: UNK

REACTIONS (6)
  - Fluid retention [Unknown]
  - Ascites [Unknown]
  - Oedema peripheral [Unknown]
  - Cardiac amyloidosis [Not Recovered/Not Resolved]
  - Disease progression [Not Recovered/Not Resolved]
  - Aortic valve replacement [Unknown]

NARRATIVE: CASE EVENT DATE: 20210101
